FAERS Safety Report 16576513 (Version 1)
Quarter: 2019Q3

REPORT INFORMATION
  Report Type: Other
  Country: US (occurrence: US)
  Receive Date: 20190716
  Receipt Date: 20190716
  Transmission Date: 20191004
  Serious: No
  Sender: FDA-Public Use
  Company Number: US-SWEDISH ORPHAN BIOVITRUM-2018US0998

PATIENT
  Age: 6 Month
  Sex: Male

DRUGS (2)
  1. ORFADIN [Suspect]
     Active Substance: NITISINONE
     Route: 048
     Dates: start: 20180815
  2. ORFADIN [Suspect]
     Active Substance: NITISINONE
     Indication: TYROSINAEMIA
     Route: 048
     Dates: start: 20180222, end: 20180815

REACTIONS (5)
  - Viral infection [Unknown]
  - Vomiting projectile [Unknown]
  - Hepatic enzyme abnormal [Unknown]
  - Insomnia [Unknown]
  - Decreased appetite [Unknown]

NARRATIVE: CASE EVENT DATE: 201808
